FAERS Safety Report 8609126 (Version 4)
Quarter: 2012Q4

REPORT INFORMATION
  Report Type: 
  Country: JP (occurrence: JP)
  Receive Date: 20120611
  Receipt Date: 20121008
  Transmission Date: 20130627
  Serious: Yes (Disabling)
  Sender: FDA-Public Use
  Company Number: JP-JNJFOC-20120600931

PATIENT
  Age: 64 Year
  Sex: Male

DRUGS (2)
  1. ITRIZOLE [Suspect]
     Indication: ANTIFUNGAL PROPHYLAXIS
     Route: 048
     Dates: start: 201111, end: 201205
  2. ONCOVIN [Interacting]
     Indication: LYMPHOMA
     Route: 042
     Dates: start: 201111, end: 201205

REACTIONS (2)
  - Neuropathy peripheral [Not Recovered/Not Resolved]
  - Drug interaction [Not Recovered/Not Resolved]
